FAERS Safety Report 5341219-5 (Version None)
Quarter: 2007Q2

REPORT INFORMATION
  Report Type: 
  Country: None (occurrence: None)
  Receive Date: 20070405
  Receipt Date: 20070112
  Transmission Date: 20071010
  Serious: No
  Sender: FDA-Public Use
  Company Number: US200701002423

PATIENT
  Age: 66 Year
  Sex: Female

DRUGS (5)
  1. CYMBALTA [Suspect]
     Indication: FIBROMYALGIA
     Dosage: 30 MG, DAILY (1/D)
     Dates: start: 20070109
  2. FLEXERIL [Concomitant]
  3. RESTORIL [Concomitant]
  4. PRILOSEC [Concomitant]
  5. ALEVE [Concomitant]

REACTIONS (3)
  - DYSURIA [None]
  - TREMOR [None]
  - URINE ODOUR ABNORMAL [None]
